FAERS Safety Report 6534771-5 (Version None)
Quarter: 2010Q1

REPORT INFORMATION
  Report Type: 
  Country: None (occurrence: None)
  Receive Date: 20100108
  Receipt Date: 20091019
  Transmission Date: 20100710
  Serious: No
  Sender: FDA-Public Use
  Company Number: 2009-00668

PATIENT
  Age: 73 Year
  Sex: Female
  Weight: 60.3284 kg

DRUGS (2)
  1. COLD REMEDY NASAL GEL [Suspect]
     Dates: start: 20090401, end: 20090401
  2. AMBIEN [Concomitant]

REACTIONS (1)
  - AGEUSIA [None]
